FAERS Safety Report 6117474-0 (Version None)
Quarter: 2009Q1

REPORT INFORMATION
  Report Type: 
  Country: None (occurrence: None)
  Receive Date: 20090314
  Receipt Date: 20090116
  Transmission Date: 20090719
  Serious: No
  Sender: FDA-Public Use
  Company Number: US-ABBOTT-09P-163-0498619-00

PATIENT
  Sex: Female
  Weight: 72.64 kg

DRUGS (8)
  1. HUMIRA [Suspect]
     Indication: CROHN'S DISEASE
     Route: 058
     Dates: start: 20080101, end: 20080601
  2. HUMIRA [Suspect]
     Dosage: 160 MG TOTAL
     Route: 058
     Dates: start: 20080401, end: 20080401
  3. HUMIRA [Suspect]
     Dosage: 80 MG TOTAL DOSE
     Route: 058
     Dates: start: 20080101, end: 20080601
  4. HUMIRA [Suspect]
     Route: 058
     Dates: start: 20080601
  5. PROTONIX [Concomitant]
     Indication: DYSPEPSIA
     Route: 048
  6. ATARAX [Concomitant]
     Indication: CYSTITIS INTERSTITIAL
     Route: 048
  7. PROBIOTIC [Concomitant]
     Indication: CROHN'S DISEASE
     Dosage: UNKNOWN DOSE
  8. HEPARIN [Concomitant]
     Indication: CYSTITIS INTERSTITIAL
     Dosage: 10 CC INTO BLADDER DAILY
     Route: 050

REACTIONS (1)
  - DRUG INEFFECTIVE [None]
